FAERS Safety Report 4489886-2 (Version None)
Quarter: 2004Q4

REPORT INFORMATION
  Report Type: 
  Country: None (occurrence: None)
  Receive Date: 20041101
  Receipt Date: 20041028
  Transmission Date: 20050328
  Serious: Yes (Life-Threatening)
  Sender: FDA-Public Use
  Company Number: US-BRISTOL-MYERS SQUIBB COMPANY-12748620

PATIENT
  Age: 53 Year
  Sex: Female

DRUGS (7)
  1. CETUXIMAB [Suspect]
     Indication: COLORECTAL CANCER METASTATIC
  2. 5-FU [Suspect]
     Indication: COLORECTAL CANCER METASTATIC
     Dosage: 2ND COURSE, INTERRUPTED, REC'D 880 MG + 1320 MG 29-SEP
     Route: 042
     Dates: start: 20040929
  3. OXALIPLATIN [Suspect]
     Indication: COLORECTAL CANCER METASTATIC
     Dosage: 2ND COURSE, INTERRUPTED
     Route: 042
     Dates: start: 20040929
  4. LEUCOVORIN [Suspect]
     Indication: COLORECTAL CANCER METASTATIC
     Dosage: INTERRUPTED
  5. ANZEMET [Concomitant]
     Dates: start: 20040929
  6. DECADRON [Concomitant]
     Dates: start: 20040929
  7. VICODIN [Concomitant]
     Dates: start: 20040908

REACTIONS (7)
  - BLOOD BILIRUBIN INCREASED [None]
  - BLOOD POTASSIUM DECREASED [None]
  - EAR HAEMORRHAGE [None]
  - HYPOTENSION [None]
  - NEUTROPENIC SEPSIS [None]
  - PLATELET COUNT DECREASED [None]
  - VOMITING [None]
